FAERS Safety Report 5757583-9 (Version None)
Quarter: 2008Q2

REPORT INFORMATION
  Report Type: 
  Country: None (occurrence: None)
  Receive Date: 20080603
  Receipt Date: 20080522
  Transmission Date: 20081010
  Serious: Yes (Other)
  Sender: FDA-Public Use
  Company Number: US-PFIZER INC-2008027616

PATIENT
  Sex: Female

DRUGS (1)
  1. LYRICA [Suspect]

REACTIONS (5)
  - BRAIN OEDEMA [None]
  - DISABILITY [None]
  - HYPERSOMNIA [None]
  - IMPAIRED DRIVING ABILITY [None]
  - VISION BLURRED [None]
